FAERS Safety Report 15126415 (Version 1)
Quarter: 2018Q3

REPORT INFORMATION
  Report Type: Spontaneous
  Country: US (occurrence: US)
  Receive Date: 20180710
  Receipt Date: 20180710
  Transmission Date: 20181010
  Serious: No
  Sender: FDA-Public Use
  Company Number: US-TEVA-2018-US-921437

PATIENT
  Sex: Female

DRUGS (5)
  1. SYNRIBO [Suspect]
     Active Substance: OMACETAXINE MEPESUCCINATE
     Indication: CHRONIC MYELOID LEUKAEMIA
  2. LOVASTATIN. [Concomitant]
     Active Substance: LOVASTATIN
     Route: 065
  3. AMLOOIPINE [Concomitant]
     Route: 065
  4. KLOR?CON [Concomitant]
     Active Substance: POTASSIUM CHLORIDE
     Route: 065
  5. TRAMADOL HYDROCHLORIDE. [Concomitant]
     Active Substance: TRAMADOL HYDROCHLORIDE
     Route: 065

REACTIONS (1)
  - Platelet count decreased [Unknown]
